FAERS Safety Report 17558101 (Version 2)
Quarter: 2021Q1

REPORT INFORMATION
  Report Type: Report from Study
  Country: US (occurrence: US)
  Receive Date: 20200318
  Receipt Date: 20210327
  Transmission Date: 20210419
  Serious: No
  Sender: FDA-Public Use
  Company Number: NVSC2020US071696

PATIENT
  Age: 71 Year
  Sex: Female

DRUGS (1)
  1. GLATOPA [Suspect]
     Active Substance: GLATIRAMER ACETATE
     Indication: MULTIPLE SCLEROSIS
     Dosage: 40 MG, OTHER
     Route: 050

REACTIONS (7)
  - Gait inability [Unknown]
  - Injection site pain [Unknown]
  - Fatigue [Unknown]
  - Injection site mass [Unknown]
  - Limb discomfort [Unknown]
  - Injection site reaction [Unknown]
  - Abdominal pain upper [Unknown]

NARRATIVE: CASE EVENT DATE: 20200309
